FAERS Safety Report 13849718 (Version 1)
Quarter: 2017Q3

REPORT INFORMATION
  Report Type: Spontaneous
  Country: US (occurrence: US)
  Receive Date: 20170809
  Receipt Date: 20170809
  Transmission Date: 20171127
  Serious: Yes (Other)
  Sender: FDA-Public Use
  Company Number: US-ROCHE-1972536

PATIENT
  Sex: Male

DRUGS (2)
  1. OCREVUS [Suspect]
     Active Substance: OCRELIZUMAB
     Indication: MULTIPLE SCLEROSIS
     Route: 042
     Dates: start: 201706
  2. OCREVUS [Suspect]
     Active Substance: OCRELIZUMAB
     Dosage: SECOND HALF OF SPLIT DOSE, ONGOING: UNKNOWN
     Route: 042
     Dates: start: 201707

REACTIONS (4)
  - Malaise [Not Recovered/Not Resolved]
  - Pyrexia [Unknown]
  - Facial paralysis [Not Recovered/Not Resolved]
  - Arthralgia [Not Recovered/Not Resolved]
